FAERS Safety Report 6903119-6 (Version None)
Quarter: 2010Q3

REPORT INFORMATION
  Report Type: 
  Country: None (occurrence: None)
  Receive Date: 20100803
  Receipt Date: 20080604
  Transmission Date: 20110219
  Serious: Yes (Other)
  Sender: FDA-Public Use
  Company Number: US-PFIZER INC-2008038597

PATIENT
  Sex: Female
  Weight: 82.727 kg

DRUGS (4)
  1. LYRICA [Suspect]
     Indication: BACK PAIN
     Dates: start: 20080225
  2. VICODIN [Concomitant]
  3. ADVIL LIQUI-GELS [Concomitant]
  4. CYMBALTA [Concomitant]

REACTIONS (10)
  - ABDOMINAL DISTENSION [None]
  - ABNORMAL DREAMS [None]
  - DIZZINESS [None]
  - DYSPHAGIA [None]
  - FEELING ABNORMAL [None]
  - FLATULENCE [None]
  - HEADACHE [None]
  - MOOD ALTERED [None]
  - SNORING [None]
  - SWELLING [None]
